FAERS Safety Report 9761643 (Version 2)
Quarter: 2013Q4

REPORT INFORMATION
  Report Type: Spontaneous
  Country: DK (occurrence: DK)
  Receive Date: 20131216
  Receipt Date: 20131216
  Transmission Date: 20140711
  Serious: Yes (Hospitalization, Disabling)
  Sender: FDA-Public Use
  Company Number: DK-GE HEALTHCARE MEDICAL DIAGNOSTICS-OSCN-NO-0903S-0139

PATIENT
  Age: 37 Year
  Sex: Male
  Weight: 58 kg

DRUGS (14)
  1. OMNISCAN [Suspect]
     Indication: TRANSPLANT EVALUATION
     Route: 042
     Dates: start: 20020429, end: 20020429
  2. GADOLINIUM (UNSPECIFIED) [Suspect]
     Indication: RENAL TRANSPLANT
     Route: 065
     Dates: start: 20010601, end: 20010601
  3. GADOLINIUM (UNSPECIFIED) [Suspect]
     Route: 065
     Dates: start: 20041014, end: 20041014
  4. DOTAREM [Concomitant]
     Route: 065
     Dates: start: 20040701, end: 20040701
  5. DOTAREM [Concomitant]
     Route: 065
     Dates: start: 20080801, end: 20080801
  6. CALCIUM ACETATE [Concomitant]
  7. DIALYSIS VITAMINS [Concomitant]
  8. METOPROLOL [Concomitant]
  9. ACETYLSALICYLIC ACID [Concomitant]
  10. INSULIN [Concomitant]
  11. DILTIAZEM [Concomitant]
  12. LEVOTHYROXIN [Concomitant]
  13. OMEPRAZOL [Concomitant]
  14. VENOFER [Concomitant]

REACTIONS (1)
  - Nephrogenic systemic fibrosis [Not Recovered/Not Resolved]
